FAERS Safety Report 12327855 (Version 1)
Quarter: 2016Q2

REPORT INFORMATION
  Report Type: Spontaneous
  Country: JP (occurrence: JP)
  Receive Date: 20160503
  Receipt Date: 20160503
  Transmission Date: 20160815
  Serious: Yes (Death)
  Sender: FDA-Public Use
  Company Number: JP-SHIONOGI, INC-2016000490

PATIENT
  Age: 60 Year
  Sex: Male

DRUGS (1)
  1. FINIBAX [Suspect]
     Active Substance: DORIPENEM MONOHYDRATE
     Indication: PNEUMONIA
     Dosage: 3 G, QD
     Route: 041
     Dates: start: 20160413, end: 20160424

REACTIONS (1)
  - Death [Fatal]

NARRATIVE: CASE EVENT DATE: 20160424
